FAERS Safety Report 7610360-6 (Version None)
Quarter: 2011Q3

REPORT INFORMATION
  Report Type: 
  Country: None (occurrence: None)
  Receive Date: 20110715
  Receipt Date: 20110107
  Transmission Date: 20111222
  Serious: No
  Sender: FDA-Public Use
  Company Number: A0905886A

PATIENT
  Age: 64 Year
  Sex: Male

DRUGS (1)
  1. OLUX [Suspect]
     Route: 065

REACTIONS (3)
  - SWELLING FACE [None]
  - WEIGHT INCREASED [None]
  - SKIN DISCOLOURATION [None]
